FAERS Safety Report 11173225 (Version 1)
Quarter: 2015Q2

REPORT INFORMATION
  Report Type: Spontaneous
  Country: US (occurrence: US)
  Receive Date: 20150608
  Receipt Date: 20150608
  Transmission Date: 20150821
  Serious: No
  Sender: FDA-Public Use
  Company Number: US-GLAXOSMITHKLINE-US2015078018

PATIENT
  Sex: Female

DRUGS (15)
  1. CEPHALEXIN. [Concomitant]
     Active Substance: CEPHALEXIN
  2. DULOXETINE [Concomitant]
     Active Substance: DULOXETINE
  3. QVAR [Concomitant]
     Active Substance: BECLOMETHASONE DIPROPIONATE
  4. OMEPRAZOLE. [Concomitant]
     Active Substance: OMEPRAZOLE
  5. TRAMADOL [Concomitant]
     Active Substance: TRAMADOL
  6. BUPROPION [Concomitant]
     Active Substance: BUPROPION
  7. TANZEUM [Suspect]
     Active Substance: ALBIGLUTIDE
     Indication: TYPE 2 DIABETES MELLITUS
     Dosage: 30 MG, WE
     Route: 058
  8. LYRICA [Concomitant]
     Active Substance: PREGABALIN
  9. GEMFIBROZIL. [Concomitant]
     Active Substance: GEMFIBROZIL
  10. MELOXICAM. [Concomitant]
     Active Substance: MELOXICAM
  11. PIOGLITAZONE [Concomitant]
     Active Substance: PIOGLITAZONE
  12. LANTUS [Concomitant]
     Active Substance: INSULIN GLARGINE
  13. ATORVASTATIN [Concomitant]
     Active Substance: ATORVASTATIN
  14. LEVOTHYROXINE [Concomitant]
     Active Substance: LEVOTHYROXINE
  15. LISINOPRIL. [Concomitant]
     Active Substance: LISINOPRIL

REACTIONS (2)
  - Contusion [Not Recovered/Not Resolved]
  - Pruritus [Not Recovered/Not Resolved]
